FAERS Safety Report 8841950 (Version 1)
Quarter: 2012Q4

REPORT INFORMATION
  Report Type: 
  Country: CA (occurrence: CA)
  Receive Date: 20121016
  Receipt Date: 20121016
  Transmission Date: 20130627
  Serious: Yes (Other)
  Sender: FDA-Public Use
  Company Number: PHHY2012CA090926

PATIENT
  Sex: Female

DRUGS (2)
  1. ESTALIS [Suspect]
  2. LEVOTHYROXINE SODIUM [Concomitant]

REACTIONS (3)
  - Cerebrovascular accident [Unknown]
  - Hypothyroidism [Unknown]
  - Visual impairment [Unknown]
